FAERS Safety Report 7619623-1 (Version None)
Quarter: 2011Q3

REPORT INFORMATION
  Report Type: 
  Country: None (occurrence: None)
  Receive Date: 20110719
  Receipt Date: 20100108
  Transmission Date: 20111222
  Serious: Yes (Death, Hospitalization, Other)
  Sender: FDA-Public Use
  Company Number: US-BAYER-201010371NA

PATIENT
  Age: 76 Year
  Sex: Female
  Weight: 56 kg

DRUGS (27)
  1. TRASYLOL [Suspect]
     Indication: MITRAL VALVE REPLACEMENT
     Dosage: 2 ML INITIAL (TEST) DOSE
     Route: 042
     Dates: start: 20051010, end: 20051010
  2. DIOVAN HCT [Concomitant]
     Dosage: 160-12.5 MG QD
     Route: 048
  3. HYDROCHLOROTHIAZIDE [Concomitant]
     Dosage: 25 MG, QD
  4. PANCURONIUM [Concomitant]
     Dosage: 10MG/40MG/
     Route: 042
     Dates: start: 20051010, end: 20051010
  5. VERSED [Concomitant]
     Dosage: 5 MG, UNK
     Route: 042
     Dates: start: 20051010, end: 20051010
  6. CIPROFLOXACIN HCL [Concomitant]
     Dosage: UNK
     Dates: start: 20020101
  7. LIPITOR [Concomitant]
     Dosage: 10 MG, QD
     Route: 048
  8. NICARDIPINE HCL [Concomitant]
     Dosage: UNK
     Route: 042
     Dates: start: 20051011, end: 20051011
  9. MILRINONE [Concomitant]
     Dosage: 0.25 MCG/KG/MIN
     Route: 042
     Dates: start: 20051010
  10. PROTAMINE SULFATE [Concomitant]
     Dosage: 220 MG, UNK
     Route: 042
     Dates: start: 20051010, end: 20051010
  11. TOPROL-XL [Concomitant]
     Dosage: 100 MG, QD
     Route: 048
  12. EPINEPHRINE [Concomitant]
     Dosage: 5 MCG/KG/MIN
     Dates: start: 20051011, end: 20051011
  13. BENAZEPRIL HYDROCHLORIDE [Concomitant]
     Dosage: UNK
     Dates: start: 20050201
  14. TRASYLOL [Suspect]
  15. FENTANYL-100 [Concomitant]
     Dosage: 15 MG, UNK
     Route: 042
     Dates: start: 20051010, end: 20051010
  16. PRINZIDE [Concomitant]
     Dosage: UNK
     Dates: start: 20020701
  17. CEFAZOLIN [Concomitant]
     Dosage: 1 G, UNK
     Route: 042
     Dates: start: 20051010, end: 20051010
  18. ACETYLSALICYLIC ACID SRT [Concomitant]
     Dosage: 325 MG, QD
     Route: 048
  19. ASPIRIN [Concomitant]
     Dosage: 325 MG, QD
     Route: 048
  20. PLAVIX [Concomitant]
     Indication: RENAL ARTERY STENT PLACEMENT
     Dosage: 75 MG, QD
     Route: 048
  21. DOBUTAMINE HCL [Concomitant]
     Dosage: 8 MCG/KG/MIN
     Route: 042
     Dates: start: 20051011, end: 20051011
  22. HEPARIN [Concomitant]
     Dosage: 25000 U, UNK
     Route: 042
     Dates: start: 20051010, end: 20051010
  23. ERYTHROMYCIN [Concomitant]
     Dosage: UNK
     Dates: start: 19990101
  24. TRASYLOL [Suspect]
     Indication: CORONARY ARTERY BYPASS
     Dosage: 200CC FOLLOWED BY A 50CC/HR DRIP
     Route: 042
     Dates: start: 20051010, end: 20051010
  25. POTASSIUM CHLORIDE [Concomitant]
     Indication: HYPOKALAEMIA
     Dosage: 20 MEQ, QD
     Route: 048
     Dates: start: 20050801
  26. NITROGLYCERIN [Concomitant]
     Dosage: DRIP
     Route: 042
     Dates: start: 20051010
  27. NEXIUM [Concomitant]
     Dosage: 40 MG, QD
     Route: 048

REACTIONS (26)
  - FEAR [None]
  - RENAL FAILURE ACUTE [None]
  - RENAL TUBULAR NECROSIS [None]
  - PLEURAL EFFUSION [None]
  - RENAL IMPAIRMENT [None]
  - EMOTIONAL DISORDER [None]
  - DEATH [None]
  - RENAL INJURY [None]
  - RENAL FAILURE [None]
  - STRESS [None]
  - STREPTOCOCCUS TEST POSITIVE [None]
  - LOBAR PNEUMONIA [None]
  - EMOTIONAL DISTRESS [None]
  - ANXIETY [None]
  - CARDIOGENIC SHOCK [None]
  - KLEBSIELLA TEST POSITIVE [None]
  - UNEVALUABLE EVENT [None]
  - ANHEDONIA [None]
  - BACILLUS TEST POSITIVE [None]
  - HAEMORRHAGIC ANAEMIA [None]
  - INJURY [None]
  - ATRIAL FIBRILLATION [None]
  - SERRATIA TEST POSITIVE [None]
  - RESPIRATORY FAILURE [None]
  - HAEMODIALYSIS [None]
  - PAIN [None]
